FAERS Safety Report 16451277 (Version 1)
Quarter: 2019Q2

REPORT INFORMATION
  Report Type: Spontaneous
  Country: US (occurrence: US)
  Receive Date: 20190619
  Receipt Date: 20190619
  Transmission Date: 20190711
  Serious: No
  Sender: FDA-Public Use
  Company Number: US-MYLANLABS-2019M1053337

PATIENT

DRUGS (1)
  1. ALBUTEROL TABLETS, USP [Suspect]
     Active Substance: ALBUTEROL
     Indication: PRODUCT USED FOR UNKNOWN INDICATION
     Dosage: UNK
     Route: 065

REACTIONS (4)
  - Genital odour [Unknown]
  - Product odour abnormal [Unknown]
  - Bladder pain [Unknown]
  - Urethral pain [Unknown]
